FAERS Safety Report 24336751 (Version 1)
Quarter: 2024Q3

REPORT INFORMATION
  Report Type: Spontaneous
  Country: CN (occurrence: CN)
  Receive Date: 20240919
  Receipt Date: 20240919
  Transmission Date: 20241017
  Serious: Yes (Other)
  Sender: ROCHE
  Company Number: CN-002147023-NVSC2024CN183940

PATIENT

DRUGS (1)
  1. RANIBIZUMAB [Suspect]
     Active Substance: RANIBIZUMAB
     Indication: Diabetic retinal oedema
     Dosage: 0.05 ML (INTRAVITREAL INJECTION 3 TIMES (1 MONTH APART)
     Route: 050

REACTIONS (1)
  - Vitreous haemorrhage [Unknown]
